FAERS Safety Report 9303858 (Version 2)
Quarter: 2013Q2

REPORT INFORMATION
  Report Type: Spontaneous
  Country: DE (occurrence: DE)
  Receive Date: 20130522
  Receipt Date: 20130605
  Transmission Date: 20140414
  Serious: Yes (Other)
  Sender: FDA-Public Use
  Company Number: DE-ASTRAZENECA-2013SE34324

PATIENT
  Age: 644 Month
  Sex: Male
  Weight: 86 kg

DRUGS (1)
  1. SYMBICORT TURBOHALER [Suspect]
     Indication: ASTHMA
     Dosage: 160/4.5 TWO TIMES A DAY
     Route: 055
     Dates: start: 20130510, end: 20130512

REACTIONS (5)
  - Laryngeal disorder [Recovered/Resolved]
  - Cough [Recovered/Resolved]
  - Aggression [Recovered/Resolved]
  - Depressed mood [Recovered/Resolved]
  - Headache [Recovered/Resolved]
